FAERS Safety Report 9683648 (Version 1)
Quarter: 2013Q4

REPORT INFORMATION
  Report Type: Spontaneous
  Country: CL (occurrence: CL)
  Receive Date: 20131112
  Receipt Date: 20131112
  Transmission Date: 20140711
  Serious: Yes (Other)
  Sender: FDA-Public Use
  Company Number: CL-PFIZER INC-2013318729

PATIENT
  Age: 87 Year
  Sex: Female

DRUGS (1)
  1. XALATAN [Suspect]
     Indication: GLAUCOMA
     Dosage: 50 UG/ML, UNK
     Route: 047

REACTIONS (2)
  - Musculoskeletal disorder [Not Recovered/Not Resolved]
  - Deafness [Not Recovered/Not Resolved]
